FAERS Safety Report 11197923 (Version 2)
Quarter: 2015Q3

REPORT INFORMATION
  Report Type: Spontaneous
  Country: US (occurrence: US)
  Receive Date: 20150617
  Receipt Date: 20150917
  Transmission Date: 20151125
  Serious: No
  Sender: FDA-Public Use
  Company Number: US-GALDERMA-US15002196

PATIENT
  Age: 56 Year
  Sex: Male

DRUGS (3)
  1. MIRVASO [Suspect]
     Active Substance: BRIMONIDINE TARTRATE
     Indication: ROSACEA
     Dosage: 0.33%
     Route: 061
     Dates: start: 20141001, end: 20141010
  2. ORACEA [Concomitant]
     Active Substance: DOXYCYCLINE
     Dosage: 40 MG
     Route: 048
  3. FINACEA [Concomitant]
     Active Substance: AZELAIC ACID
     Dosage: 15%
     Route: 061

REACTIONS (2)
  - Rebound effect [Recovered/Resolved]
  - Condition aggravated [Recovered/Resolved]

NARRATIVE: CASE EVENT DATE: 20141001
